FAERS Safety Report 5994656-X (Version None)
Quarter: 2008Q4

REPORT INFORMATION
  Report Type: 
  Country: None (occurrence: None)
  Receive Date: 20081212
  Receipt Date: 20080911
  Transmission Date: 20090506
  Serious: No
  Sender: FDA-Public Use
  Company Number: US-ABBOTT-08P-163-0475957-00

PATIENT
  Sex: Female
  Weight: 53.118 kg

DRUGS (3)
  1. HUMIRA [Suspect]
     Indication: CROHN'S DISEASE
     Dosage: 160 MG INITIALLY LOADING DOSE
     Route: 058
     Dates: start: 20080701
  2. HUMIRA [Suspect]
     Dosage: 80MG LOADING DOSE, 2WEEKS AFTER INITIAL
  3. HUMIRA [Suspect]

REACTIONS (1)
  - ERYTHEMA [None]
